FAERS Safety Report 21279419 (Version 2)
Quarter: 2022Q3

REPORT INFORMATION
  Report Type: Other
  Country: TW (occurrence: None)
  Receive Date: 20220901
  Receipt Date: 20220922
  Transmission Date: 20221026
  Serious: Yes (Other)
  Sender: FDA-Public Use
  Company Number: TW-ROCHE-3167785

PATIENT
  Age: 63 Year
  Sex: Female

DRUGS (8)
  1. PERJETA [Suspect]
     Active Substance: PERTUZUMAB
     Indication: Breast cancer
     Route: 042
     Dates: start: 20211112
  2. HERCEPTIN [Suspect]
     Active Substance: TRASTUZUMAB
     Indication: Breast cancer
     Route: 058
     Dates: start: 20211112
  3. CHLORPHENIRAMINE MALEATE [Concomitant]
     Active Substance: CHLORPHENIRAMINE MALEATE
  4. ACETAL (TAIWAN) [Concomitant]
  5. PARAN [Concomitant]
  6. STROCAIN (TAIWAN) [Concomitant]
  7. CELEBREX [Concomitant]
     Active Substance: CELECOXIB
     Dates: start: 20220718
  8. BIOFERMIN-R [Concomitant]

REACTIONS (2)
  - Neutropenia [Recovered/Resolved]
  - Cellulitis [Not Recovered/Not Resolved]

NARRATIVE: CASE EVENT DATE: 20220516
